FAERS Safety Report 6097635-X (Version None)
Quarter: 2009Q1

REPORT INFORMATION
  Report Type: 
  Country: None (occurrence: None)
  Receive Date: 20090225
  Receipt Date: 20090225
  Transmission Date: 20090719
  Serious: No
  Sender: FDA-Public Use
  Company Number: None

PATIENT
  Age: 59 Year
  Sex: Male
  Weight: 83.0083 kg

DRUGS (1)
  1. AMOXICILLIN [Suspect]
     Indication: DENTAL DISORDER PROPHYLAXIS
     Dosage: ONE PILL @ 6 HOURS- PO
     Route: 048
     Dates: start: 20090224, end: 20090224

REACTIONS (6)
  - ERYTHEMA [None]
  - PAIN [None]
  - PRODUCT QUALITY ISSUE [None]
  - PRURITUS [None]
  - RASH [None]
  - URTICARIA [None]
